FAERS Safety Report 6914706-3 (Version None)
Quarter: 2010Q3

REPORT INFORMATION
  Report Type: 
  Country: None (occurrence: None)
  Receive Date: 20100804
  Receipt Date: 20100804
  Transmission Date: 20110219
  Serious: Yes (Hospitalization)
  Sender: FDA-Public Use
  Company Number: None

PATIENT
  Age: 62 Year
  Sex: Male
  Weight: 100.7 kg

DRUGS (2)
  1. CLOPIDOGREL [Suspect]
     Dosage: 75 MG EVERY DAY PO
     Route: 048
     Dates: start: 20090912, end: 20100614
  2. ASPIRIN [Suspect]
     Dosage: 325 MG EVERY DAY PO
     Route: 048
     Dates: start: 20090912, end: 20100614

REACTIONS (1)
  - GASTRIC HAEMORRHAGE [None]
